FAERS Safety Report 9372873 (Version 2)
Quarter: 2013Q3

REPORT INFORMATION
  Report Type: Spontaneous
  Country: JP (occurrence: JP)
  Receive Date: 20130627
  Receipt Date: 20130801
  Transmission Date: 20140515
  Serious: Yes (Death, Hospitalization)
  Sender: FDA-Public Use
  Company Number: PHHY2013JP066298

PATIENT
  Sex: Male

DRUGS (1)
  1. NEORAL [Suspect]
     Indication: TRANSPLANT
     Route: 048

REACTIONS (2)
  - Lymphoproliferative disorder [Fatal]
  - Oral administration complication [Unknown]
